FAERS Safety Report 4507954-3 (Version None)
Quarter: 2004Q4

REPORT INFORMATION
  Report Type: 
  Country: None (occurrence: None)
  Receive Date: 20041123
  Receipt Date: 20041105
  Transmission Date: 20050328
  Serious: Yes (Death, Hospitalization)
  Sender: FDA-Public Use
  Company Number: US-BRISTOL-MYERS SQUIBB COMPANY-12771036

PATIENT
  Sex: Male

DRUGS (1)
  1. TEQUIN [Suspect]

REACTIONS (2)
  - DEATH [None]
  - HALLUCINATION [None]
